FAERS Safety Report 10925511 (Version 5)
Quarter: 2015Q4

REPORT INFORMATION
  Report Type: Spontaneous
  Country: CZ (occurrence: CZ)
  Receive Date: 20150318
  Receipt Date: 20151105
  Transmission Date: 20160304
  Serious: Yes (Hospitalization, Disabling, Other)
  Sender: FDA-Public Use
  Company Number: CZ-PFIZER INC-2015090115

PATIENT
  Age: 65 Year
  Sex: Male
  Weight: 84 kg

DRUGS (5)
  1. HELICID 20 ZENTIVA [Concomitant]
     Indication: DYSPEPSIA
     Dosage: UNK
     Route: 048
  2. PRESTARIUM NEO COMBI 10MG/2.5MG [Concomitant]
     Indication: HYPERTENSION
     Dosage: 2.5 MG/10 MG
     Route: 048
  3. SUTENT [Suspect]
     Active Substance: SUNITINIB MALATE
     Dosage: 25 MG, 1X/DAY
     Route: 048
     Dates: start: 20150331, end: 20150403
  4. WARFARIN ORION 3 MG [Concomitant]
     Indication: VENOUS THROMBOSIS LIMB
     Dosage: 3 MG, 1X/DAY
     Route: 048
     Dates: start: 20131111
  5. SUTENT [Suspect]
     Active Substance: SUNITINIB MALATE
     Indication: RENAL CANCER
     Dosage: 50 MG, 1X/DAY
     Route: 048
     Dates: start: 20140808, end: 20150218

REACTIONS (6)
  - Cholecystitis [Recovered/Resolved]
  - Epilepsy [Unknown]
  - Blood pressure increased [Recovered/Resolved]
  - Hepatic enzyme increased [Recovered/Resolved]
  - Colitis [Recovered/Resolved]
  - Vomiting [Recovered/Resolved]

NARRATIVE: CASE EVENT DATE: 20150218
